FAERS Safety Report 15973578 (Version 2)
Quarter: 2019Q1

REPORT INFORMATION
  Report Type: Spontaneous
  Country: CN (occurrence: CN)
  Receive Date: 20190216
  Receipt Date: 20190216
  Transmission Date: 20190418
  Serious: Yes (Life-Threatening)
  Sender: FDA-Public Use
  Company Number: PHHY2019CN036658

PATIENT
  Age: 8 Year
  Sex: Female

DRUGS (7)
  1. FLUDARABINE [Concomitant]
     Active Substance: FLUDARABINE PHOSPHATE
     Indication: BONE MARROW CONDITIONING REGIMEN
     Dosage: UNK
     Route: 065
  2. CICLOSPORIN [Suspect]
     Active Substance: CYCLOSPORINE
     Indication: STEM CELL TRANSPLANT
     Dosage: 2.5-3.0 MG/KG QD
     Route: 042
  3. CICLOSPORIN [Suspect]
     Active Substance: CYCLOSPORINE
     Indication: IMMUNOSUPPRESSANT DRUG THERAPY
  4. BUSULFAN. [Concomitant]
     Active Substance: BUSULFAN
     Indication: BONE MARROW CONDITIONING REGIMEN
     Dosage: TOTAL 11.2-12.8 MG/KG, DIVIDED INTO 16 FRACTIONS FROM DAYS 9 TO 6
     Route: 042
  5. CICLOSPORIN [Suspect]
     Active Substance: CYCLOSPORINE
     Indication: PROPHYLAXIS AGAINST GRAFT VERSUS HOST DISEASE
  6. ANTITHYMOCYTE IMMUNOGLOBULIN (RABBIT) [Concomitant]
     Active Substance: LAPINE T-LYMPHOCYTE IMMUNE GLOBULIN
     Indication: BONE MARROW CONDITIONING REGIMEN
     Dosage: 11.25 MG/KG, UNK
     Route: 065
  7. CYCLOPHOSPHAMIDE. [Concomitant]
     Active Substance: CYCLOPHOSPHAMIDE
     Indication: BONE MARROW CONDITIONING REGIMEN
     Dosage: TOTAL 120-200 MG/KG, DIVIDED INTO 4 FRACTIONS BETWEEN DAYS 5 AND 2
     Route: 065

REACTIONS (6)
  - Vomiting [Recovered/Resolved]
  - Posterior reversible encephalopathy syndrome [Recovered/Resolved]
  - Mental status changes [Recovered/Resolved]
  - Blindness [Recovered/Resolved]
  - Hypertension [Recovered/Resolved]
  - Headache [Recovered/Resolved]
